FAERS Safety Report 10040354 (Version 1)
Quarter: 2014Q1

REPORT INFORMATION
  Report Type: Spontaneous
  Country: US (occurrence: US)
  Receive Date: 20140327
  Receipt Date: 20140327
  Transmission Date: 20141002
  Serious: No
  Sender: FDA-Public Use
  Company Number: US-BIOGENIDEC-2014BI027913

PATIENT
  Age: 66 Year
  Sex: Female

DRUGS (9)
  1. AVONEX [Suspect]
     Indication: MULTIPLE SCLEROSIS
     Route: 030
     Dates: start: 19960801, end: 20130501
  2. AVONEX [Suspect]
     Indication: MULTIPLE SCLEROSIS
     Route: 030
     Dates: start: 20131224
  3. AVONEX [Suspect]
     Indication: MULTIPLE SCLEROSIS
     Route: 030
     Dates: start: 20140131
  4. IBUPROFEN [Concomitant]
     Indication: PREMEDICATION
  5. COPAXONE [Concomitant]
     Dates: start: 201210, end: 201305
  6. AUBAGIO [Concomitant]
     Dates: start: 201305, end: 201311
  7. GABAPENTIN [Concomitant]
  8. LORAZEPAM [Concomitant]
     Indication: ANXIETY
  9. LORAZEPAM [Concomitant]
     Indication: SLEEP DISORDER

REACTIONS (11)
  - Renal disorder [Recovered/Resolved]
  - Tremor [Recovered/Resolved]
  - Mass [Unknown]
  - Abdominal pain [Not Recovered/Not Resolved]
  - Delirium [Recovered/Resolved]
  - Abdominal pain upper [Not Recovered/Not Resolved]
  - Gallbladder disorder [Recovered/Resolved]
  - Influenza like illness [Recovered/Resolved]
  - Anxiety [Unknown]
  - Rash papular [Unknown]
  - Feeling abnormal [Unknown]
